FAERS Safety Report 23197401 (Version 1)
Quarter: 2023Q4

REPORT INFORMATION
  Report Type: Spontaneous
  Country: FR (occurrence: FR)
  Receive Date: 20231117
  Receipt Date: 20231117
  Transmission Date: 20240110
  Serious: Yes (Hospitalization, Other)
  Sender: FDA-Public Use
  Company Number: FR-AFSSAPS-AN2023001009

PATIENT
  Age: 35 Year
  Sex: Male

DRUGS (4)
  1. SERTRALINE [Suspect]
     Active Substance: SERTRALINE HYDROCHLORIDE
     Indication: Behaviour disorder
     Dosage: 50 MILLIGRAM, DAILY
     Route: 048
     Dates: start: 202307, end: 20230725
  2. RISPERIDONE [Suspect]
     Active Substance: RISPERIDONE
     Indication: Behaviour disorder
     Dosage: 3 MILLIGRAM, DAILY
     Route: 048
     Dates: start: 202307, end: 20230725
  3. ZOPICLONE [Suspect]
     Active Substance: ZOPICLONE
     Indication: Sleep disorder
     Dosage: 10 MILLIGRAM, DAILY
     Route: 048
     Dates: start: 202306
  4. AMISULPRIDE [Suspect]
     Active Substance: AMISULPRIDE
     Indication: Frontotemporal dementia
     Dosage: 100 MILLIGRAM, DAILY
     Route: 048
     Dates: start: 202306, end: 20230725

REACTIONS (2)
  - Pancreatitis acute [Recovering/Resolving]
  - Hypertriglyceridaemia [Recovering/Resolving]

NARRATIVE: CASE EVENT DATE: 20230717
